FAERS Safety Report 4721870-3 (Version None)
Quarter: 2005Q3

REPORT INFORMATION
  Report Type: 
  Country: None (occurrence: None)
  Receive Date: 20050721
  Receipt Date: 20050518
  Transmission Date: 20060218
  Serious: Yes (Other)
  Sender: FDA-Public Use
  Company Number: US-BRISTOL-MYERS SQUIBB COMPANY-12972840

PATIENT
  Age: 76 Year
  Sex: Male
  Weight: 88 kg

DRUGS (1)
  1. COUMADIN [Suspect]
     Dosage: 5MG STARTED 3 YRS. AGO; DOSE CHANGED OFTEN OVER 2 YRS.; NOW ON 2.5MG 4 X'S/WEEK + 5MG 3 X'S/WEEK

REACTIONS (2)
  - EPISTAXIS [None]
  - PROTHROMBIN TIME ABNORMAL [None]
